FAERS Safety Report 26084971 (Version 2)
Quarter: 2025Q4

REPORT INFORMATION
  Report Type: Spontaneous
  Country: JP (occurrence: JP)
  Receive Date: 20251125
  Receipt Date: 20251125
  Transmission Date: 20260119
  Serious: Yes (Hospitalization)
  Sender: ROCHE
  Company Number: JP-ROCHE-10000431182

PATIENT
  Sex: Male

DRUGS (7)
  1. MYCOPHENOLATE MOFETIL [Suspect]
     Active Substance: MYCOPHENOLATE MOFETIL
     Indication: Prophylaxis against transplant rejection
     Route: 065
  2. TACROLIMUS [Concomitant]
     Active Substance: TACROLIMUS
  3. METHYLPREDNISOLONE [Concomitant]
     Active Substance: METHYLPREDNISOLONE
  4. CARVEDILOL [Concomitant]
     Active Substance: CARVEDILOL
  5. NICORANDIL [Concomitant]
     Active Substance: NICORANDIL
  6. ASPIRIN [Concomitant]
     Active Substance: ASPIRIN
  7. MIZORIBINE [Concomitant]
     Active Substance: MIZORIBINE

REACTIONS (2)
  - Ileal ulcer [Recovered/Resolved]
  - Enteritis [Recovered/Resolved]
